FAERS Safety Report 7464685-8 (Version None)
Quarter: 2011Q2

REPORT INFORMATION
  Report Type: 
  Country: None (occurrence: None)
  Receive Date: 20110509
  Receipt Date: 20110324
  Transmission Date: 20111010
  Serious: Yes (Hospitalization)
  Sender: FDA-Public Use
  Company Number: US-BAYER-201028183NA

PATIENT
  Age: 21 Year
  Sex: Female
  Weight: 52.154 kg

DRUGS (5)
  1. YASMIN [Suspect]
     Route: 048
     Dates: start: 20030501, end: 20090901
  2. PREVACID [Concomitant]
  3. DROSPIRENONE AND ETHINYL ESTRADIOL [Suspect]
     Dosage: UNK UNK, QD
     Route: 048
  4. YAZ [Suspect]
     Route: 048
     Dates: start: 20030501, end: 20090901
  5. LORATADINE [Concomitant]

REACTIONS (5)
  - VOMITING [None]
  - NAUSEA [None]
  - CHOLECYSTITIS CHRONIC [None]
  - CHEST PAIN [None]
  - CHOLELITHIASIS [None]
